FAERS Safety Report 5993493-X (Version None)
Quarter: 2008Q4

REPORT INFORMATION
  Report Type: 
  Country: None (occurrence: None)
  Receive Date: 20081210
  Receipt Date: 20081128
  Transmission Date: 20090506
  Serious: Yes (Death)
  Sender: FDA-Public Use
  Company Number: GXKR2008GB11379

PATIENT
  Age: 65 Year
  Sex: Male

DRUGS (1)
  1. CO-AMOXICLAV (NGX) (AMOXICILLIN, CLAVULANATE) UNKNOWN [Suspect]
     Dosage: 1200 MG, INTRAVENOUS
     Route: 042

REACTIONS (3)
  - HEPATIC FAILURE [None]
  - HEPATITIS CHOLESTATIC [None]
  - SEPSIS [None]
